FAERS Safety Report 22349142 (Version 1)
Quarter: 2023Q2

REPORT INFORMATION
  Report Type: Spontaneous
  Country: GB (occurrence: GB)
  Receive Date: 20230522
  Receipt Date: 20230522
  Transmission Date: 20230721
  Serious: Yes (Hospitalization)
  Sender: FDA-Public Use
  Company Number: GB-JNJFOC-20230541741

PATIENT
  Age: 74 Year
  Sex: Male
  Weight: 114 kg

DRUGS (1)
  1. STELARA [Suspect]
     Active Substance: USTEKINUMAB
     Indication: Psoriasis
     Route: 058

REACTIONS (7)
  - Cellulitis [Recovering/Resolving]
  - Thoracic vertebral fracture [Recovering/Resolving]
  - Osteoporosis [Recovering/Resolving]
  - International normalised ratio increased [Recovering/Resolving]
  - Constipation [Recovering/Resolving]
  - Syncope [Unknown]
  - Vitamin D deficiency [Recovering/Resolving]

NARRATIVE: CASE EVENT DATE: 20211117
